FAERS Safety Report 8369235-X (Version None)
Quarter: 2012Q2

REPORT INFORMATION
  Report Type: 
  Country: None (occurrence: None)
  Receive Date: 20120518
  Receipt Date: 20120510
  Transmission Date: 20120825
  Serious: Yes (Other)
  Sender: FDA-Public Use
  Company Number: PHHY2012FR033086

PATIENT
  Sex: Female
  Weight: 64.6 kg

DRUGS (4)
  1. EXELON [Suspect]
     Indication: DEMENTIA ALZHEIMER'S TYPE
     Dosage: 3 MG, UNK
     Route: 048
     Dates: start: 20090501, end: 20111013
  2. BISOPROLOL FUMARATE [Concomitant]
     Indication: HYPERTENSION
     Dosage: 1.25 MG, QD
  3. MODOPAR [Concomitant]
     Indication: EXTRAPYRAMIDAL DISORDER
     Dosage: 625 MG, QD
  4. SULPIRIDE [Concomitant]
     Indication: DELIRIUM
     Dosage: 100 MG, QD

REACTIONS (5)
  - DELIRIUM [None]
  - DRUG INTOLERANCE [None]
  - NEURODEGENERATIVE DISORDER [None]
  - ABNORMAL BEHAVIOUR [None]
  - DRUG INEFFECTIVE [None]
